FAERS Safety Report 8825988 (Version 2)
Quarter: 2015Q3

REPORT INFORMATION
  Report Type: Report from Study
  Country: US (occurrence: US)
  Receive Date: 20121005
  Receipt Date: 20150804
  Transmission Date: 20151125
  Serious: Yes (Death)
  Sender: FDA-Public Use
  Company Number: US-ROCHE-1131326

PATIENT
  Sex: Female

DRUGS (50)
  1. METHOTREXATE [Concomitant]
     Active Substance: METHOTREXATE
     Route: 065
  2. ASMANEX [Concomitant]
     Active Substance: MOMETASONE FUROATE
     Dosage: EVERY NIGHT AT BED TIME
     Route: 065
  3. COUMADIN [Concomitant]
     Active Substance: WARFARIN SODIUM
     Route: 065
  4. BENADRYL [Concomitant]
     Active Substance: DIPHENHYDRAMINE HYDROCHLORIDE
     Route: 042
  5. ZANTAC [Concomitant]
     Active Substance: RANITIDINE HYDROCHLORIDE
     Route: 042
  6. RITUXAN [Suspect]
     Active Substance: RITUXIMAB
     Indication: SYSTEMIC LUPUS ERYTHEMATOSUS
     Dosage: TO BE TAKEN ON DAY 1 AND DAY 15
     Route: 042
     Dates: start: 20060918
  7. METHOTREXATE [Concomitant]
     Active Substance: METHOTREXATE
     Route: 065
  8. LORTAB (UNITED STATES) [Concomitant]
  9. SYNTHROID [Concomitant]
     Active Substance: LEVOTHYROXINE SODIUM
     Route: 065
  10. PHENERGAN [Concomitant]
     Active Substance: PROMETHAZINE HYDROCHLORIDE
     Route: 065
  11. ZANTAC [Concomitant]
     Active Substance: RANITIDINE HYDROCHLORIDE
     Route: 065
  12. TRAMADOL. [Concomitant]
     Active Substance: TRAMADOL
     Route: 065
  13. HYDROCODONE HCL [Concomitant]
     Route: 065
  14. PROTONIX (UNITED STATES) [Concomitant]
     Route: 065
  15. CELEBREX [Concomitant]
     Active Substance: CELECOXIB
     Route: 065
  16. BUTALBITAL [Concomitant]
     Active Substance: BUTALBITAL
  17. MYCOPHENOLATE MOFETIL. [Concomitant]
     Active Substance: MYCOPHENOLATE MOFETIL
     Route: 065
  18. POTASSIUM CHLORIDE. [Concomitant]
     Active Substance: POTASSIUM CHLORIDE
     Route: 065
  19. NEURONTIN [Concomitant]
     Active Substance: GABAPENTIN
     Route: 065
  20. PLAQUENIL [Concomitant]
     Active Substance: HYDROXYCHLOROQUINE SULFATE
     Route: 065
  21. ZANTAC [Concomitant]
     Active Substance: RANITIDINE HYDROCHLORIDE
     Route: 065
  22. ZYRTEC [Concomitant]
     Active Substance: CETIRIZINE HYDROCHLORIDE
     Dosage: TWICE A DAY
     Route: 048
  23. SPIRIVA [Concomitant]
     Active Substance: TIOTROPIUM BROMIDE MONOHYDRATE
     Dosage: ONCE IN A DAY
     Route: 065
  24. MOBIC [Concomitant]
     Active Substance: MELOXICAM
     Route: 065
  25. RITUXAN [Suspect]
     Active Substance: RITUXIMAB
     Indication: OFF LABEL USE
  26. PREDNISONE. [Concomitant]
     Active Substance: PREDNISONE
     Route: 048
  27. CYMBALTA [Concomitant]
     Active Substance: DULOXETINE HYDROCHLORIDE
     Route: 065
  28. IRON SULFATE [Concomitant]
     Active Substance: FERROUS SULFATE ANHYDROUS
     Dosage: ONCE IN A DAY
     Route: 065
  29. FOLIC ACID. [Concomitant]
     Active Substance: FOLIC ACID
     Route: 065
  30. RELPAX [Concomitant]
     Active Substance: ELETRIPTAN HYDROBROMIDE
     Route: 065
  31. AFRIN (OXYMETAZOLINE HYDROCHLORIDE) [Concomitant]
     Dosage: 2 SPOON
     Route: 065
  32. ALLEGRA [Concomitant]
     Active Substance: FEXOFENADINE HYDROCHLORIDE
     Route: 065
  33. ASPIRIN. [Concomitant]
     Active Substance: ASPIRIN
     Route: 065
  34. BIOTIN [Concomitant]
     Active Substance: BIOTIN
     Route: 065
  35. PREDNISONE. [Concomitant]
     Active Substance: PREDNISONE
     Route: 048
  36. LYRICA [Concomitant]
     Active Substance: PREGABALIN
     Route: 065
  37. COUMADIN [Concomitant]
     Active Substance: WARFARIN SODIUM
     Route: 065
  38. SOLU-MEDROL [Concomitant]
     Active Substance: METHYLPREDNISOLONE SODIUM SUCCINATE
     Route: 042
  39. SUDAFED (UNITED KINGDOM) [Concomitant]
  40. ZITHROMAX [Concomitant]
     Active Substance: AZITHROMYCIN DIHYDRATE
     Route: 048
  41. FOLIC ACID. [Concomitant]
     Active Substance: FOLIC ACID
     Route: 065
  42. XOPENEX [Concomitant]
     Active Substance: LEVALBUTEROL HYDROCHLORIDE
  43. VALTREX [Concomitant]
     Active Substance: VALACYCLOVIR HYDROCHLORIDE
     Route: 065
  44. RITUXAN [Suspect]
     Active Substance: RITUXIMAB
     Indication: LUPUS ENDOCARDITIS
  45. RITUXAN [Suspect]
     Active Substance: RITUXIMAB
     Indication: RHEUMATOID ARTHRITIS
  46. OMEGA 3 FATTY ACIDS [Concomitant]
     Active Substance: OMEGA-3 FATTY ACIDS
     Dosage: TWICE IN A DAY
     Route: 065
  47. LYRICA [Concomitant]
     Active Substance: PREGABALIN
     Route: 065
  48. TYLENOL [Concomitant]
     Active Substance: ACETAMINOPHEN
     Dosage: AS NEEDED
     Route: 065
  49. DELSYM [Concomitant]
     Active Substance: DEXTROMETHORPHAN
     Dosage: 1 TEA SPOON
     Route: 065
  50. PARACETAMOL [Concomitant]
     Active Substance: ACETAMINOPHEN
     Route: 065

REACTIONS (40)
  - Headache [Unknown]
  - Influenza [Unknown]
  - Pain [Unknown]
  - Urinary hesitation [Unknown]
  - Fatigue [Unknown]
  - Neck pain [Unknown]
  - Death [Fatal]
  - Tremor [Unknown]
  - Hyperhidrosis [Unknown]
  - Peripheral swelling [Unknown]
  - Joint swelling [Unknown]
  - Arthralgia [Unknown]
  - Vertigo [Unknown]
  - Dysphonia [Unknown]
  - Somnolence [Unknown]
  - Pyrexia [Unknown]
  - Tongue coated [Unknown]
  - Fibromyalgia [Unknown]
  - Dry skin [Unknown]
  - Eye discharge [Unknown]
  - Hypoaesthesia [Unknown]
  - Asthenia [Unknown]
  - Diarrhoea [Unknown]
  - Abdominal discomfort [Unknown]
  - Sinusitis [Unknown]
  - Off label use [Unknown]
  - Oropharyngeal pain [Unknown]
  - Incontinence [Unknown]
  - Disease progression [Unknown]
  - Eye swelling [Unknown]
  - Cough [Unknown]
  - Flushing [Unknown]
  - Cheilitis [Unknown]
  - Tinnitus [Unknown]
  - Rhinorrhoea [Unknown]
  - Epistaxis [Unknown]
  - Musculoskeletal pain [Unknown]
  - Dizziness [Unknown]
  - Fluid retention [Unknown]
  - Weight increased [Unknown]
